FAERS Safety Report 24027509 (Version 1)
Quarter: 2024Q2

REPORT INFORMATION
  Report Type: Spontaneous
  Country: FR (occurrence: None)
  Receive Date: 20240628
  Receipt Date: 20240628
  Transmission Date: 20240715
  Serious: Yes (Hospitalization)
  Sender: FDA-Public Use
  Company Number: 2024A143749

PATIENT
  Age: 72 Year
  Sex: Male

DRUGS (1)
  1. IMFINZI [Suspect]
     Active Substance: DURVALUMAB
     Dosage: 1 COURSE EVERY 21 DAYS =} 3 COURSES IN TOTAL1500.0MG UNKNOWN
     Route: 042
     Dates: start: 20240213, end: 20240424

REACTIONS (1)
  - C3 glomerulopathy [Not Recovered/Not Resolved]

NARRATIVE: CASE EVENT DATE: 20240506
